FAERS Safety Report 17092742 (Version 1)
Quarter: 2019Q4

REPORT INFORMATION
  Report Type: Spontaneous
  Country: GB (occurrence: GB)
  Receive Date: 20191129
  Receipt Date: 20191129
  Transmission Date: 20200122
  Serious: Yes (Hospitalization, Other)
  Sender: FDA-Public Use
  Company Number: GB-TAIHO ONCOLOGY  INC-JPTT180461

PATIENT
  Age: 55 Year
  Sex: Female

DRUGS (4)
  1. LONSURF [Suspect]
     Active Substance: TIPIRACIL HYDROCHLORIDE\TRIFLURIDINE
     Dosage: 45 MG (UNKMG/M2) BID
     Route: 065
     Dates: start: 20170405
  2. LONSURF [Suspect]
     Active Substance: TIPIRACIL HYDROCHLORIDE\TRIFLURIDINE
     Indication: COLORECTAL CANCER METASTATIC
     Dosage: 55 MG (UNKMG/M2) BID
     Route: 065
     Dates: start: 20161126, end: 20161207
  3. LONSURF [Suspect]
     Active Substance: TIPIRACIL HYDROCHLORIDE\TRIFLURIDINE
     Dosage: 45 MG (UNKMG/M2) BID
     Route: 065
     Dates: start: 20170223, end: 20170306
  4. LONSURF [Suspect]
     Active Substance: TIPIRACIL HYDROCHLORIDE\TRIFLURIDINE
     Dosage: 45 MG (UNKMG/M2) BID
     Route: 065
     Dates: start: 20170104, end: 20170115

REACTIONS (7)
  - Malignant neoplasm progression [Unknown]
  - Hydronephrosis [Unknown]
  - Abdominal pain [Unknown]
  - Acute kidney injury [Unknown]
  - Alopecia [Unknown]
  - Neutropenia [Unknown]
  - Metastases to lung [Unknown]

NARRATIVE: CASE EVENT DATE: 20161210
